FAERS Safety Report 8398381 (Version 2)
Quarter: 2013Q1

REPORT INFORMATION
  Report Type: Spontaneous
  Country: US (occurrence: US)
  Receive Date: 20120209
  Receipt Date: 20130326
  Transmission Date: 20140127
  Serious: Yes (Other)
  Sender: FDA-Public Use
  Company Number: US-ROCHE-803027

PATIENT
  Age: 15 Year
  Sex: Male
  Weight: 94.89 kg

DRUGS (2)
  1. ACCUTANE [Suspect]
     Indication: ACNE
     Route: 065
  2. TYLENOL [Concomitant]

REACTIONS (5)
  - Colitis ulcerative [Unknown]
  - Haemorrhoids [Unknown]
  - Depression [Unknown]
  - Lip dry [Unknown]
  - Tonsillitis [Unknown]
